FAERS Safety Report 7907375-7 (Version None)
Quarter: 2011Q4

REPORT INFORMATION
  Report Type: 
  Country: None (occurrence: None)
  Receive Date: 20111110
  Receipt Date: 20110628
  Transmission Date: 20120403
  Serious: Yes (Life-Threatening, Hospitalization)
  Sender: FDA-Public Use
  Company Number: AT-CEPHALON-2011005741

PATIENT
  Sex: Male

DRUGS (2)
  1. BENDAMUSTINE HCL (MANUFACTURER UNKNOWN) [Suspect]
     Indication: CHRONIC LYMPHOCYTIC LEUKAEMIA
     Route: 042
     Dates: start: 20080708, end: 20080806
  2. RITUXIMAB [Concomitant]
     Dates: start: 20080704, end: 20080827

REACTIONS (1)
  - ORGANISING PNEUMONIA [None]
